FAERS Safety Report 8413580-6 (Version None)
Quarter: 2012Q2

REPORT INFORMATION
  Report Type: 
  Country: None (occurrence: None)
  Receive Date: 20120605
  Receipt Date: 20120525
  Transmission Date: 20120825
  Serious: Yes (Hospitalization)
  Sender: FDA-Public Use
  Company Number: ES-ELI_LILLY_AND_COMPANY-ES201205009521

PATIENT
  Sex: Female
  Weight: 62 kg

DRUGS (2)
  1. DULOXETINE HYDROCHLORIDE [Concomitant]
     Indication: DEPRESSION
     Dosage: UNK
  2. FORTEO [Suspect]
     Indication: OSTEOPOROSIS
     Dosage: 20 UG, QD
     Route: 058
     Dates: start: 20101101, end: 20120301

REACTIONS (1)
  - IMPAIRED HEALING [None]
